FAERS Safety Report 22323312 (Version 2)
Quarter: 2023Q2

REPORT INFORMATION
  Report Type: Other
  Country: US (occurrence: US)
  Receive Date: 20230516
  Receipt Date: 20230517
  Transmission Date: 20230721
  Serious: No
  Sender: FDA-Public Use
  Company Number: US-TRAVERE-2023TVT00091

PATIENT
  Age: 61 Year
  Sex: Female

DRUGS (2)
  1. FILSPARI [Suspect]
     Active Substance: SPARSENTAN
     Indication: IgA nephropathy
     Dosage: 200 MG RE-021
     Route: 048
  2. FILSPARI [Suspect]
     Active Substance: SPARSENTAN
     Dosage: 400 MG RE-021 (TAKING 2 OF THE 200MG AT PRESENT)
     Route: 048

REACTIONS (5)
  - Dizziness [Not Recovered/Not Resolved]
  - Fall [Unknown]
  - Contusion [Unknown]
  - Blood pressure abnormal [Unknown]
  - Muscle spasms [Unknown]

NARRATIVE: CASE EVENT DATE: 20230201
